FAERS Safety Report 23955057 (Version 2)
Quarter: 2024Q3

REPORT INFORMATION
  Report Type: Spontaneous
  Country: MA (occurrence: MA)
  Receive Date: 20240610
  Receipt Date: 20240707
  Transmission Date: 20241016
  Serious: Yes (Other)
  Sender: ROCHE
  Company Number: MA-ROCHE-3576473

PATIENT

DRUGS (1)
  1. TECENTRIQ [Suspect]
     Active Substance: ATEZOLIZUMAB
     Indication: Lung neoplasm malignant
     Route: 065

REACTIONS (1)
  - Disease progression [Unknown]
